FAERS Safety Report 25907173 (Version 2)
Quarter: 2025Q4

REPORT INFORMATION
  Report Type: Report from Study
  Country: EU (occurrence: EU)
  Receive Date: 20251010
  Receipt Date: 20251130
  Transmission Date: 20260118
  Serious: Yes (Hospitalization)
  Sender: ABBVIE
  Company Number: EU-ABBVIE-6233798

PATIENT
  Age: 80 Year
  Sex: Male

DRUGS (3)
  1. FOSCARBIDOPA\FOSLEVODOPA [Suspect]
     Active Substance: FOSCARBIDOPA\FOSLEVODOPA
     Indication: Parkinson^s disease
     Dosage: CRN: 0.25 ML/H, CR: 0.35 ML/H, CRH: 0.38 ML/H ED: 0.15 ML.
     Route: 058
     Dates: start: 20240409
  2. FOSCARBIDOPA\FOSLEVODOPA [Suspect]
     Active Substance: FOSCARBIDOPA\FOSLEVODOPA
     Dosage: CR: 0.35 ML/H; CRN: 0.30 ML/H
     Route: 058
  3. FOSCARBIDOPA\FOSLEVODOPA [Suspect]
     Active Substance: FOSCARBIDOPA\FOSLEVODOPA
     Dosage: SD: 0.30ML, CRN: 0.24ML/H, CR: 0.30ML/H, CRH: 0.34ML/H, ED: 0.10ML
     Route: 058

REACTIONS (15)
  - Cardiac valve disease [Not Recovered/Not Resolved]
  - Asthenia [Not Recovered/Not Resolved]
  - Infusion site mass [Not Recovered/Not Resolved]
  - Infusion site haemorrhage [Not Recovered/Not Resolved]
  - Device use issue [Not Recovered/Not Resolved]
  - Infusion site pain [Recovered/Resolved]
  - Infusion site bruising [Unknown]
  - Infusion site reaction [Unknown]
  - Device leakage [Unknown]
  - Device connection issue [Unknown]
  - Scar [Unknown]
  - Cardiac disorder [Not Recovered/Not Resolved]
  - Blood pressure abnormal [Unknown]
  - Infusion site pain [Not Recovered/Not Resolved]
  - Catheter site haemorrhage [Unknown]

NARRATIVE: CASE EVENT DATE: 20250101
